FAERS Safety Report 10884731 (Version 1)
Quarter: 2015Q1

REPORT INFORMATION
  Report Type: Spontaneous
  Country: None (occurrence: None)
  Receive Date: 20150227
  Receipt Date: 20150227
  Transmission Date: 20150721
  Serious: Yes (Other)
  Sender: FDA-Public Use
  Company Number: None

PATIENT
  Age: 56 Year
  Sex: Female
  Weight: 137.43 kg

DRUGS (1)
  1. BELSOMRA [Suspect]
     Active Substance: SUVOREXANT
     Indication: INSOMNIA
     Route: 048
     Dates: start: 20150210, end: 20150222

REACTIONS (4)
  - Hypoaesthesia oral [None]
  - Hemiplegia [None]
  - Oropharyngeal discomfort [None]
  - Headache [None]

NARRATIVE: CASE EVENT DATE: 20150211
